FAERS Safety Report 11799183 (Version 1)
Quarter: 2015Q4

REPORT INFORMATION
  Report Type: Report from Study
  Country: US (occurrence: US)
  Receive Date: 20151203
  Receipt Date: 20151203
  Transmission Date: 20160305
  Serious: No
  Sender: FDA-Public Use
  Company Number: US-AMGEN-USASL2015114536

PATIENT
  Age: 88 Year
  Sex: Male
  Weight: 76.64 kg

DRUGS (1)
  1. REPATHA [Suspect]
     Active Substance: EVOLOCUMAB
     Indication: HYPERCHOLESTEROLAEMIA
     Dosage: 140 MG/ML, Q2WK
     Route: 065
     Dates: start: 20151006

REACTIONS (4)
  - Injection site pain [Unknown]
  - Asthenia [Unknown]
  - Lethargy [Unknown]
  - Blood glucose increased [Recovered/Resolved]

NARRATIVE: CASE EVENT DATE: 201510
